FAERS Safety Report 5630682-8 (Version None)
Quarter: 2008Q1

REPORT INFORMATION
  Report Type: 
  Country: None (occurrence: None)
  Receive Date: 20080213
  Receipt Date: 20080201
  Transmission Date: 20080703
  Serious: Yes (Death)
  Sender: FDA-Public Use
  Company Number: 2008003055

PATIENT
  Age: 5 Month
  Sex: Female

DRUGS (1)
  1. INFANT'S PEDIACARE DECONGESTANT (PSEUDOEPHEDRINE) [Suspect]
     Dosage: ORAL
     Route: 048

REACTIONS (1)
  - OVERDOSE [None]
